FAERS Safety Report 12923769 (Version 1)
Quarter: 2016Q4

REPORT INFORMATION
  Report Type: Spontaneous
  Country: AR (occurrence: AR)
  Receive Date: 20161109
  Receipt Date: 20161109
  Transmission Date: 20170207
  Serious: Yes (Death, Other)
  Sender: FDA-Public Use
  Company Number: AR-ROCHE-1850422

PATIENT
  Age: 64 Year
  Sex: Female

DRUGS (5)
  1. DOXORUBICIN [Concomitant]
     Active Substance: DOXORUBICIN
     Indication: B-CELL LYMPHOMA
  2. MEPREDNISONE [Concomitant]
     Active Substance: MEPREDNISONE
     Indication: B-CELL LYMPHOMA
  3. CYCLOPHOSPHAMIDE. [Concomitant]
     Active Substance: CYCLOPHOSPHAMIDE
     Indication: B-CELL LYMPHOMA
  4. VINCRISTINE [Concomitant]
     Active Substance: VINCRISTINE
     Indication: B-CELL LYMPHOMA
  5. RITUXIMAB [Suspect]
     Active Substance: RITUXIMAB
     Indication: B-CELL LYMPHOMA
     Route: 065

REACTIONS (5)
  - Intervertebral disc protrusion [Unknown]
  - Cerebral ischaemia [Unknown]
  - Depression [Unknown]
  - Mucosal inflammation [Unknown]
  - Death [Fatal]
